FAERS Safety Report 17679919 (Version 1)
Quarter: 2020Q2

REPORT INFORMATION
  Report Type: Spontaneous
  Country: US (occurrence: US)
  Receive Date: 20200416
  Receipt Date: 20200416
  Transmission Date: 20200714
  Serious: Yes (Other)
  Sender: FDA-Public Use
  Company Number: None

PATIENT
  Age: 13 Year
  Sex: Male
  Weight: 42.75 kg

DRUGS (1)
  1. GOOD SPIRITS HAND SANITIZER [Suspect]
     Active Substance: ALCOHOL
     Indication: POOR SANITATION
     Dates: start: 20200415, end: 20200415

REACTIONS (2)
  - Accidental exposure to product by child [None]
  - Poisoning [None]

NARRATIVE: CASE EVENT DATE: 20200416
